FAERS Safety Report 5081107-5 (Version None)
Quarter: 2006Q3

REPORT INFORMATION
  Report Type: 
  Country: None (occurrence: None)
  Receive Date: 20060816
  Receipt Date: 20060807
  Transmission Date: 20061208
  Serious: Yes (Hospitalization, Other)
  Sender: FDA-Public Use
  Company Number: GB-JNJFOC-20060801580

PATIENT
  Sex: Male

DRUGS (4)
  1. REMICADE [Suspect]
     Indication: RHEUMATOID ARTHRITIS
     Route: 042
  2. METHOTREXATE [Concomitant]
     Route: 065
  3. FOLIC ACID [Concomitant]
     Route: 065
  4. MELOXICAM [Concomitant]
     Route: 065

REACTIONS (3)
  - MULTIPLE FRACTURES [None]
  - POSTOPERATIVE INFECTION [None]
  - ROAD TRAFFIC ACCIDENT [None]
